FAERS Safety Report 15423329 (Version 1)
Quarter: 2018Q3

REPORT INFORMATION
  Report Type: Report from Study
  Country: CA (occurrence: CA)
  Receive Date: 20180925
  Receipt Date: 20180925
  Transmission Date: 20181010
  Serious: Yes (Other)
  Sender: FDA-Public Use
  Company Number: CA-TEVA-2018-CA-956262

PATIENT
  Sex: Female

DRUGS (2)
  1. COPAXONE [Suspect]
     Active Substance: GLATIRAMER ACETATE
     Indication: MULTIPLE SCLEROSIS
     Dosage: 20 MILLIGRAM/MILLILITERS DAILY;
     Route: 058
     Dates: start: 20001101
  2. SYNTHROID [Concomitant]
     Active Substance: LEVOTHYROXINE SODIUM

REACTIONS (17)
  - Malaise [Unknown]
  - Chest discomfort [Unknown]
  - Skin discolouration [Unknown]
  - Nausea [Unknown]
  - Loss of consciousness [Unknown]
  - Hyperhidrosis [Unknown]
  - Palpitations [Unknown]
  - Abdominal discomfort [Unknown]
  - Erythema [Unknown]
  - Movement disorder [Unknown]
  - Dyspnoea [Unknown]
  - Herpes zoster [Unknown]
  - Insomnia [Unknown]
  - Tension headache [Unknown]
  - Back pain [Unknown]
  - Syncope [Unknown]
  - Headache [Unknown]
